FAERS Safety Report 14959107 (Version 1)
Quarter: 2018Q2

REPORT INFORMATION
  Report Type: Spontaneous
  Country: GB (occurrence: GB)
  Receive Date: 20180531
  Receipt Date: 20180531
  Transmission Date: 20180711
  Serious: Yes (Other)
  Sender: FDA-Public Use
  Company Number: GB-TEVA-2018-GB-898701

PATIENT
  Age: 48 Year
  Sex: Female
  Weight: 74 kg

DRUGS (12)
  1. LANSOPRAZOLE. [Concomitant]
     Active Substance: LANSOPRAZOLE
     Dosage: ONE DAILY WHEN REQUIRED
     Dates: start: 20161109
  2. BISOPROLOL [Concomitant]
     Active Substance: BISOPROLOL
     Dosage: 1 DOSAGE FORMS DAILY;
     Dates: start: 20140110
  3. FLUOXETINE [Suspect]
     Active Substance: FLUOXETINE HYDROCHLORIDE
     Dates: start: 20180201
  4. DIAZEPAM. [Concomitant]
     Active Substance: DIAZEPAM
     Dosage: TAKE ONE OR TWO AS NEEDED FOR SHORT TERM USE
     Dates: start: 20180115, end: 20180116
  5. ZOMORPH [Concomitant]
     Active Substance: MORPHINE SULFATE
     Dosage: 4 DOSAGE FORMS DAILY;
     Dates: start: 20170731
  6. LOPERAMIDE [Concomitant]
     Active Substance: LOPERAMIDE
     Dosage: AFTER EACH LOOSE STOOL
     Dates: start: 20140110
  7. MONTELUKAST [Concomitant]
     Active Substance: MONTELUKAST SODIUM
     Dosage: 1 DOSAGE FORMS DAILY;
     Dates: start: 20180323
  8. CLENIL MODULITE [Concomitant]
     Active Substance: BECLOMETHASONE DIPROPIONATE
     Dosage: 6 DOSAGE FORMS DAILY; PUFFS
     Dates: start: 20140110
  9. SALBUTAMOL [Concomitant]
     Active Substance: ALBUTEROL
     Indication: DYSPNOEA
     Dosage: 2 DOSAGE FORMS DAILY; 2 PUFFS 4 TIMES A DAY/ AS REQUIRED
     Dates: start: 20140207
  10. BEZAFIBRATE [Concomitant]
     Active Substance: BEZAFIBRATE
     Dosage: 1 DOSAGE FORMS DAILY;
     Dates: start: 20160510
  11. VENLAFAXINE [Concomitant]
     Active Substance: VENLAFAXINE HYDROCHLORIDE
     Dosage: 2 DOSAGE FORMS DAILY;
     Dates: start: 20180216
  12. ORAMORPH [Concomitant]
     Active Substance: MORPHINE SULFATE
     Dosage: 2.5 TO 5 MLS 4 HOURLY AS REQUIRED.
     Dates: start: 20140110

REACTIONS (1)
  - Urinary incontinence [Recovered/Resolved]

NARRATIVE: CASE EVENT DATE: 20180323
